FAERS Safety Report 4438603-0 (Version None)
Quarter: 2004Q3

REPORT INFORMATION
  Report Type: 
  Country: None (occurrence: None)
  Receive Date: 20040728
  Receipt Date: 20040224
  Transmission Date: 20050211
  Serious: No
  Sender: FDA-Public Use
  Company Number: USA040260159

PATIENT
  Age: 8 Year
  Sex: Male
  Weight: 24 kg

DRUGS (4)
  1. STRATTERA [Suspect]
     Indication: ABNORMAL BEHAVIOUR
     Dosage: 18 MG/1 DAY
     Dates: start: 20040221
  2. ADVAIR DISKUS 100/50 [Concomitant]
  3. RHINOCORT (BUDESOMIDE) [Concomitant]
  4. ALBUTEROL [Concomitant]

REACTIONS (1)
  - ABNORMAL BEHAVIOUR [None]
